FAERS Safety Report 25413095 (Version 1)
Quarter: 2025Q2

REPORT INFORMATION
  Report Type: Report from Study
  Country: CN (occurrence: CN)
  Receive Date: 20250609
  Receipt Date: 20250609
  Transmission Date: 20250717
  Serious: Yes (Death, Other)
  Sender: SANOFI AVENTIS
  Company Number: CN-DialogSolutions-SAAVPROD-PI781155-C3

PATIENT

DRUGS (3)
  1. IRBESARTAN [Suspect]
     Active Substance: IRBESARTAN
     Indication: Hypertension
     Dosage: 75 MG, QD, INITIALLY ADMINISTERED
  2. IRBESARTAN [Suspect]
     Active Substance: IRBESARTAN
     Dosage: 75 MG, BID, IF TOLERATED
  3. IRBESARTAN [Suspect]
     Active Substance: IRBESARTAN
     Dosage: 150 MG, BID, MAXIMUM TOLERATED DOSAGE

REACTIONS (1)
  - Cardiac failure [Fatal]
